FAERS Safety Report 13991664 (Version 3)
Quarter: 2020Q1

REPORT INFORMATION
  Report Type: Spontaneous
  Country: US (occurrence: US)
  Receive Date: 20170920
  Receipt Date: 20200123
  Transmission Date: 20200409
  Serious: No
  Sender: FDA-Public Use
  Company Number: US-JNJFOC-20170808707

PATIENT
  Age: 12 Year
  Sex: Male

DRUGS (12)
  1. RISPERDAL [Suspect]
     Active Substance: RISPERIDONE
     Indication: MAJOR DEPRESSION
  2. RISPERIDONE. [Suspect]
     Active Substance: RISPERIDONE
     Indication: ATTENTION DEFICIT/HYPERACTIVITY DISORDER
     Dosage: VARYING DOSE OF 3 MG AND 4 MG
     Route: 065
     Dates: start: 20080707, end: 20081230
  3. RISPERIDONE. [Suspect]
     Active Substance: RISPERIDONE
     Indication: MAJOR DEPRESSION
  4. RISPERDAL [Suspect]
     Active Substance: RISPERIDONE
     Indication: MAJOR DEPRESSION
  5. RISPERDAL [Suspect]
     Active Substance: RISPERIDONE
     Indication: OPPOSITIONAL DEFIANT DISORDER
     Route: 048
     Dates: start: 20040727, end: 20050308
  6. RISPERDAL [Suspect]
     Active Substance: RISPERIDONE
     Indication: OPPOSITIONAL DEFIANT DISORDER
     Dosage: 1 MG/ML
     Route: 048
     Dates: end: 2008
  7. RISPERDAL [Suspect]
     Active Substance: RISPERIDONE
     Indication: ATTENTION DEFICIT/HYPERACTIVITY DISORDER
     Dosage: VARYING DOSE OF 0.25 MG, 0.5 MG, 1 MG, 2MG, 3 MG AND 4 MG
     Route: 048
     Dates: start: 20010328, end: 20080614
  8. RISPERDAL [Suspect]
     Active Substance: RISPERIDONE
     Indication: ADJUSTMENT DISORDER
  9. RISPERDAL [Suspect]
     Active Substance: RISPERIDONE
     Indication: ATTENTION DEFICIT/HYPERACTIVITY DISORDER
     Dosage: 1 MG/ML
     Route: 048
     Dates: start: 20020226, end: 20030402
  10. RISPERDAL [Suspect]
     Active Substance: RISPERIDONE
     Indication: ADJUSTMENT DISORDER
  11. RISPERIDONE. [Suspect]
     Active Substance: RISPERIDONE
     Indication: ADJUSTMENT DISORDER
  12. RISPERIDONE. [Suspect]
     Active Substance: RISPERIDONE
     Indication: OPPOSITIONAL DEFIANT DISORDER

REACTIONS (5)
  - Product use in unapproved indication [Unknown]
  - Off label use [Unknown]
  - Emotional distress [Unknown]
  - Gynaecomastia [Unknown]
  - Treatment noncompliance [Unknown]

NARRATIVE: CASE EVENT DATE: 20010328
